FAERS Safety Report 8451298-4 (Version None)
Quarter: 2012Q2

REPORT INFORMATION
  Report Type: 
  Country: None (occurrence: None)
  Receive Date: 20120620
  Receipt Date: 20120314
  Transmission Date: 20120825
  Serious: No
  Sender: FDA-Public Use
  Company Number: US-VERTEX PHARMACEUTICALS INC.-AE-2012-002392

PATIENT
  Sex: Male
  Weight: 122.58 kg

DRUGS (5)
  1. RIBAVIRIN [Concomitant]
     Indication: HEPATITIS C
     Route: 048
     Dates: start: 20120106
  2. PEGASYS [Concomitant]
     Indication: HEPATITIS C
     Route: 058
     Dates: start: 20120106
  3. ATIVAN [Concomitant]
     Indication: ANXIETY
  4. INCIVEK [Suspect]
     Indication: HEPATITIS C
     Route: 048
     Dates: start: 20120106
  5. ALLOPURINOL [Concomitant]
     Indication: GOUT

REACTIONS (3)
  - FUNGAL INFECTION [None]
  - RASH [None]
  - ANORECTAL DISCOMFORT [None]
